FAERS Safety Report 5787883-8 (Version None)
Quarter: 2008Q2

REPORT INFORMATION
  Report Type: 
  Country: None (occurrence: None)
  Receive Date: 20080618
  Receipt Date: 20070423
  Transmission Date: 20081010
  Serious: Yes (Other)
  Sender: FDA-Public Use
  Company Number: 200710466US

PATIENT
  Age: 73 Year
  Sex: Male
  Weight: 95.5 kg

DRUGS (13)
  1. LANTUS [Suspect]
     Indication: TYPE 2 DIABETES MELLITUS
     Dosage: 30 U HS
     Dates: start: 20070119
  2. LANTUS [Suspect]
     Indication: TYPE 2 DIABETES MELLITUS
     Dosage: 15 U QPM
     Dates: start: 20070120
  3. OPTICLIK [Suspect]
     Indication: TYPE 2 DIABETES MELLITUS
     Dates: start: 20070119
  4. GLYBURIDE AND METFORMIN HCL [Concomitant]
  5. AVANDIA [Concomitant]
  6. HYDRALAZINE HCL [Concomitant]
  7. DILTIAZEM HYDROCHLORIDE (CARDIZEM LA) [Concomitant]
  8. VALSARTAN (DIOVANE) [Concomitant]
  9. SIMVASTATIN [Concomitant]
  10. CAPTOPRIL [Concomitant]
  11. INSULIN [Concomitant]
  12. INSULIN ASPART, INSULIN ASPART PROTAMINE (NOVOLOG MIX) [Concomitant]
  13. METFORMIN HCL [Concomitant]

REACTIONS (11)
  - ACCIDENTAL OVERDOSE [None]
  - ALTERED STATE OF CONSCIOUSNESS [None]
  - ASTHENIA [None]
  - BLOOD GLUCOSE DECREASED [None]
  - BLOOD GLUCOSE INCREASED [None]
  - CONFUSIONAL STATE [None]
  - DIZZINESS [None]
  - DYSARTHRIA [None]
  - FALL [None]
  - HYPOGLYCAEMIA [None]
  - MOBILITY DECREASED [None]
